FAERS Safety Report 7589315-6 (Version None)
Quarter: 2011Q2

REPORT INFORMATION
  Report Type: 
  Country: None (occurrence: None)
  Receive Date: 20110627
  Receipt Date: 20110615
  Transmission Date: 20111010
  Serious: Yes (Other)
  Sender: FDA-Public Use
  Company Number: JPI-P-015502

PATIENT
  Age: 33 Year
  Sex: Male
  Weight: 68.0396 kg

DRUGS (1)
  1. XYREM [Suspect]
     Indication: SLEEP DISORDER
     Dosage: ORAL; 6 GM (3 GM, 2 IN 1 D), ORAL
     Route: 048
     Dates: start: 20050101

REACTIONS (2)
  - NEPHROLITHIASIS [None]
  - CHONDROPATHY [None]
